FAERS Safety Report 12691401 (Version 1)
Quarter: 2016Q3

REPORT INFORMATION
  Report Type: Report from Study
  Country: US (occurrence: US)
  Receive Date: 20160826
  Receipt Date: 20160826
  Transmission Date: 20161109
  Serious: Yes (Other)
  Sender: FDA-Public Use
  Company Number: US-ABBVIE-16K-163-1666033-00

PATIENT
  Sex: Female

DRUGS (3)
  1. HUMIRA [Suspect]
     Active Substance: ADALIMUMAB
     Indication: CROHN^S DISEASE
     Dosage: DAY ONE
     Route: 058
     Dates: start: 20160614, end: 20160614
  2. HUMIRA [Suspect]
     Active Substance: ADALIMUMAB
     Route: 058
     Dates: start: 201607
  3. HUMIRA [Suspect]
     Active Substance: ADALIMUMAB
     Dosage: DAY 15
     Route: 058
     Dates: start: 20160628, end: 20160628

REACTIONS (8)
  - Blindness transient [Recovered/Resolved]
  - Migraine [Unknown]
  - Injection site pain [Unknown]
  - Sensory loss [Unknown]
  - Hunger [Unknown]
  - Fear [Unknown]
  - Panic attack [Unknown]
  - Insomnia [Unknown]

NARRATIVE: CASE EVENT DATE: 2016
